FAERS Safety Report 9521598 (Version 1)
Quarter: 2013Q1

REPORT INFORMATION
  Report Type: Spontaneous
  Country: US (occurrence: None)
  Receive Date: 20130305
  Receipt Date: 20130305
  Transmission Date: 20140127
  Serious: Yes (Other)
  Sender: FDA-Public Use
  Company Number: 163-21880-12011397

PATIENT
  Age: 81 Year
  Sex: Male

DRUGS (10)
  1. REVLIMID (LENALIDOMIDE) (5  MILLIGRAM, CAPSULES) [Suspect]
     Indication: PLASMA CELL MYELOMA
     Dosage: 5 MG, QD X 21 DAYS/28 DAYS, PO
     Dates: start: 200911, end: 201002
  2. DECADRON(DEXAMETHASONE)(UNKNOWN) [Concomitant]
  3. AREDIA(PAMIDRONATE DISODIUM)(UNKNOWN) [Concomitant]
  4. LOVENOX(HEPARIN-FRACTION, SODIUM SALT)(UNKNOWN) [Concomitant]
  5. FINASTERIDE(FINASTERIDE)(UNKNOWN) [Concomitant]
  6. TRAMADOL(TRAMADOL) [Concomitant]
  7. SIMVASTATIN(SIMVASTATIN)(UNKNOWN) [Concomitant]
  8. LORAZEPAM(LORAZEPAM)(UNKNOWN) [Concomitant]
  9. TERAZOSIN(TERAZOSIN)(UNKNOWN) [Concomitant]
  10. LEVOTHROID(LEVOTHYROXINE SODIUM)(UNKNOWN) [Concomitant]

REACTIONS (2)
  - Neutrophil count decreased [None]
  - Fatigue [None]
